FAERS Safety Report 9798537 (Version 1)
Quarter: 2013Q4

REPORT INFORMATION
  Report Type: Spontaneous
  Country: GB (occurrence: None)
  Receive Date: 20131231
  Receipt Date: 20131231
  Transmission Date: 20140711
  Serious: Yes (Other)
  Sender: FDA-Public Use
  Company Number: AUR-APL-2013-10691

PATIENT
  Age: 61 Year
  Sex: Female
  Weight: 91 kg

DRUGS (7)
  1. NAPROXEN [Suspect]
     Indication: PRODUCT USED FOR UNKNOWN INDICATION
     Dates: start: 20131126
  2. DICLOFENAC SODIUM [Suspect]
     Indication: PRODUCT USED FOR UNKNOWN INDICATION
     Dates: start: 20131205
  3. CETIRIZINE (CETIRIZINE) [Concomitant]
  4. LANSOPRAZOLE [Concomitant]
  5. ORAMORPH (MORPHINE SULFATE PENTAHYDRATE) [Concomitant]
  6. PARACETAMOL [Concomitant]
  7. TRAMADOL [Concomitant]

REACTIONS (2)
  - Wheezing [None]
  - Dyspnoea [None]
